FAERS Safety Report 10213652 (Version 1)
Quarter: 2014Q2

REPORT INFORMATION
  Report Type: Spontaneous
  Country: US (occurrence: US)
  Receive Date: 20140603
  Receipt Date: 20140603
  Transmission Date: 20141212
  Serious: No
  Sender: FDA-Public Use
  Company Number: US-TEVA-485700USA

PATIENT
  Sex: Male

DRUGS (2)
  1. CLARAVIS [Suspect]
     Route: 048
     Dates: start: 20131223, end: 20140304
  2. PREDNISONE [Concomitant]

REACTIONS (3)
  - Abscess [Unknown]
  - Alopecia [Unknown]
  - Pharyngitis streptococcal [Unknown]
